FAERS Safety Report 13024315 (Version 1)
Quarter: 2016Q4

REPORT INFORMATION
  Report Type: Spontaneous
  Country: US (occurrence: US)
  Receive Date: 20161213
  Receipt Date: 20161213
  Transmission Date: 20170207
  Serious: Yes (Other)
  Sender: FDA-Public Use
  Company Number: US-SAGENTPRD-2016-US-000085

PATIENT
  Age: 78 Year
  Sex: Female

DRUGS (1)
  1. LEVETIRACETAM INJECTION [Suspect]
     Active Substance: LEVETIRACETAM
     Dosage: UNKNOWN

REACTIONS (1)
  - Seizure [Unknown]
